FAERS Safety Report 9822060 (Version 1)
Quarter: 2014Q1

REPORT INFORMATION
  Report Type: Spontaneous
  Country: US (occurrence: US)
  Receive Date: 20140116
  Receipt Date: 20140116
  Transmission Date: 20141002
  Serious: Yes (Other)
  Sender: FDA-Public Use
  Company Number: CHPA2014US000723

PATIENT
  Age: 62 Year
  Sex: Female
  Weight: 49.89 kg

DRUGS (3)
  1. EX-LAX MAX STR LAX PILLS SENNA [Suspect]
     Indication: CONSTIPATION
     Dosage: 1.5 DF, PRN
     Route: 048
     Dates: end: 20140104
  2. EX-LAX REG STR LAX PILLS SENNA [Suspect]
     Indication: CONSTIPATION
     Dosage: 1-2 DF, PRN
     Route: 048
     Dates: start: 1975
  3. ACETYLSALICYLIC ACID [Suspect]

REACTIONS (9)
  - Ulcer [Recovered/Resolved]
  - Pain [Recovered/Resolved]
  - Feeling abnormal [Unknown]
  - Discomfort [Recovered/Resolved]
  - Gastrointestinal tract irritation [Recovered/Resolved]
  - Fatigue [Recovered/Resolved]
  - Diarrhoea [Recovered/Resolved]
  - Underdose [Unknown]
  - Therapeutic response decreased [Unknown]
